FAERS Safety Report 11081887 (Version 1)
Quarter: 2015Q2

REPORT INFORMATION
  Report Type: Report from Study
  Country: BR (occurrence: BR)
  Receive Date: 20150501
  Receipt Date: 20150501
  Transmission Date: 20150821
  Serious: Yes (Death)
  Sender: FDA-Public Use
  Company Number: PHHY2015BR052297

PATIENT
  Sex: Female
  Weight: 60 kg

DRUGS (6)
  1. FORASEQ [Suspect]
     Active Substance: BUDESONIDE\FORMOTEROL FUMARATE
     Indication: BLOOD CHOLESTEROL INCREASED
  2. GALVUS [Suspect]
     Active Substance: VILDAGLIPTIN
     Indication: BLOOD CHOLESTEROL INCREASED
  3. DIOVAN [Suspect]
     Active Substance: VALSARTAN
     Indication: BLOOD CHOLESTEROL INCREASED
  4. GALVUS [Suspect]
     Active Substance: VILDAGLIPTIN
     Indication: HYPERTENSION
     Dosage: UNK
     Route: 065
  5. DIOVAN [Suspect]
     Active Substance: VALSARTAN
     Indication: HYPERTENSION
     Dosage: 2 DF (TABLETS), UNK
     Route: 065
  6. FORASEQ [Suspect]
     Active Substance: BUDESONIDE\FORMOTEROL FUMARATE
     Indication: HYPERTENSION
     Dosage: UNK
     Route: 065

REACTIONS (1)
  - Respiratory failure [Fatal]
